FAERS Safety Report 10575916 (Version 1)
Quarter: 2014Q4

REPORT INFORMATION
  Report Type: Spontaneous
  Country: US (occurrence: None)
  Receive Date: 20141110
  Receipt Date: 20141110
  Transmission Date: 20150529
  Serious: Yes (Other)
  Sender: FDA-Public Use
  Company Number: None

PATIENT
  Age: 29 Year
  Sex: Female

DRUGS (1)
  1. MAKENA [Suspect]
     Active Substance: HYDROXYPROGESTERONE CAPROATE
     Indication: PREMATURE LABOUR
     Dosage: 1ML *250MG*, Q WEEK, IM
     Route: 030
     Dates: start: 20141002

REACTIONS (5)
  - Asthenia [None]
  - Exposure during pregnancy [None]
  - Hypoaesthesia [None]
  - Hyperventilation [None]
  - Syncope [None]

NARRATIVE: CASE EVENT DATE: 20141103
